FAERS Safety Report 13768128 (Version 1)
Quarter: 2017Q3

REPORT INFORMATION
  Report Type: Spontaneous
  Country: TW (occurrence: TW)
  Receive Date: 20170719
  Receipt Date: 20170719
  Transmission Date: 20171127
  Serious: Yes (Other)
  Sender: FDA-Public Use
  Company Number: TW-PFIZER INC-2017305807

PATIENT
  Age: 58 Year
  Sex: Male

DRUGS (1)
  1. BENEFIX [Suspect]
     Active Substance: COAGULATION FACTOR IX RECOMBINANT HUMAN\ISOPROPYL ALCOHOL
     Indication: HAEMOPHILIA
     Dosage: 3000 IU, ONCE PER 5 DAYS (Q5D)
     Route: 042

REACTIONS (1)
  - Gingival abscess [Recovering/Resolving]

NARRATIVE: CASE EVENT DATE: 20170630
